FAERS Safety Report 6891480-0 (Version None)
Quarter: 2010Q3

REPORT INFORMATION
  Report Type: 
  Country: None (occurrence: None)
  Receive Date: 20100731
  Receipt Date: 20070730
  Transmission Date: 20110219
  Serious: No
  Sender: FDA-Public Use
  Company Number: US-PFIZER INC-2007011604

PATIENT
  Sex: Male
  Weight: 77.11 kg

DRUGS (4)
  1. NORVASC [Suspect]
     Indication: HYPERTENSION
     Route: 048
     Dates: start: 20070101
  2. SIMVASTATIN [Concomitant]
  3. ACETAZOLAMIDE [Concomitant]
  4. LISINOPRIL [Concomitant]

REACTIONS (1)
  - ABDOMINAL DISCOMFORT [None]
